FAERS Safety Report 4505846-7 (Version None)
Quarter: 2004Q4

REPORT INFORMATION
  Report Type: 
  Country: None (occurrence: None)
  Receive Date: 20041025
  Receipt Date: 20040707
  Transmission Date: 20050328
  Serious: Yes (Hospitalization, Other)
  Sender: FDA-Public Use
  Company Number: US-JNJFOC-20040304241

PATIENT
  Age: 70 Year
  Sex: Female
  Weight: 70.3075 kg

DRUGS (11)
  1. REMICADE [Suspect]
     Indication: RHEUMATOID ARTHRITIS
     Dosage: INTRAVENOUS
     Route: 042
     Dates: start: 20010601
  2. CAPTOPRIL [Concomitant]
  3. FUROSEMIDE [Concomitant]
  4. AZATHIOPRINE [Concomitant]
  5. METHOTREXATE [Concomitant]
  6. SINGULAIR [Concomitant]
  7. ALBUTEROL [Concomitant]
  8. PREMARIN [Concomitant]
  9. MOBIC [Concomitant]
  10. DEMADEX [Concomitant]
  11. CA CO3 (CALCIUM) [Concomitant]

REACTIONS (5)
  - ALOPECIA [None]
  - COCCIDIOIDOMYCOSIS [None]
  - ONYCHOMADESIS [None]
  - SINUSITIS [None]
  - TOOTH LOSS [None]
